FAERS Safety Report 5866981-4 (Version None)
Quarter: 2008Q3

REPORT INFORMATION
  Report Type: 
  Country: None (occurrence: None)
  Receive Date: 20080828
  Receipt Date: 20080828
  Transmission Date: 20090109
  Serious: Yes (Life-Threatening, Hospitalization)
  Sender: FDA-Public Use
  Company Number: None

PATIENT
  Age: 69 Year
  Sex: Male
  Weight: 87 kg

DRUGS (1)
  1. ENOXAPARIN SODIUM [Suspect]
     Indication: DEEP VEIN THROMBOSIS
     Dosage: 135 MG EVERY DAY SQ
     Route: 058
     Dates: start: 20080221, end: 20080702

REACTIONS (4)
  - ANAEMIA [None]
  - GASTROINTESTINAL ULCER HAEMORRHAGE [None]
  - HYPERCALCAEMIA [None]
  - LOSS OF CONSCIOUSNESS [None]
